FAERS Safety Report 20664043 (Version 1)
Quarter: 2022Q2

REPORT INFORMATION
  Report Type: Spontaneous
  Country: CN (occurrence: None)
  Receive Date: 20220401
  Receipt Date: 20220401
  Transmission Date: 20220720
  Serious: Yes (Other)
  Sender: FDA-Public Use
  Company Number: 2022A130831

PATIENT
  Age: 12220 Day
  Sex: Male
  Weight: 100 kg

DRUGS (3)
  1. TICAGRELOR [Suspect]
     Active Substance: TICAGRELOR
     Indication: Antiplatelet therapy
     Route: 048
     Dates: start: 20220306, end: 20220312
  2. ASPIRIN [Suspect]
     Active Substance: ASPIRIN
     Indication: Antiplatelet therapy
     Route: 048
  3. HEPARIN SODIUM [Concomitant]
     Active Substance: HEPARIN SODIUM
     Indication: Anticoagulant therapy
     Route: 058

REACTIONS (2)
  - Epistaxis [Recovered/Resolved]
  - Nasal septum deviation [Unknown]

NARRATIVE: CASE EVENT DATE: 20220312
